FAERS Safety Report 9423228 (Version 2)
Quarter: 2013Q3

REPORT INFORMATION
  Report Type: Spontaneous
  Country: US (occurrence: US)
  Receive Date: 20130726
  Receipt Date: 20130806
  Transmission Date: 20140515
  Serious: No
  Sender: FDA-Public Use
  Company Number: US-UCBSA-092319

PATIENT
  Age: 53 Year
  Sex: Female

DRUGS (1)
  1. KEPPRA [Suspect]
     Indication: CONVULSION
     Dosage: TAKEN ABOUT 10 PILLS OUTOF 20
     Dates: start: 201307

REACTIONS (2)
  - Bradyphrenia [Recovered/Resolved]
  - Movement disorder [Recovered/Resolved]
